FAERS Safety Report 25551609 (Version 1)
Quarter: 2025Q3

REPORT INFORMATION
  Report Type: Report from Study
  Country: IN (occurrence: IN)
  Receive Date: 20250714
  Receipt Date: 20250714
  Transmission Date: 20251021
  Serious: Yes (Other)
  Sender: DAIICHI
  Company Number: IN-AstraZeneca-CH-00904196A

PATIENT
  Age: 56 Year
  Sex: Female
  Weight: 71 kg

DRUGS (1)
  1. ENHERTU [Suspect]
     Active Substance: FAM-TRASTUZUMAB DERUXTECAN-NXKI
     Indication: Product used for unknown indication
     Dosage: 300 ML, ONCE EVERY 3 WK
     Route: 040

REACTIONS (18)
  - Osteogenesis imperfecta [Unknown]
  - Arthralgia [Unknown]
  - Back pain [Unknown]
  - Feeling of body temperature change [Unknown]
  - Discomfort [Unknown]
  - Asthenia [Unknown]
  - Hypokinesia [Unknown]
  - Impaired work ability [Unknown]
  - Swelling face [Unknown]
  - Haemoglobin decreased [Unknown]
  - Dyspepsia [Unknown]
  - Nausea [Unknown]
  - Constipation [Unknown]
  - Memory impairment [Unknown]
  - Asthenia [Unknown]
  - Blood calcium decreased [Unknown]
  - Pruritus [Unknown]
  - Headache [Unknown]
